FAERS Safety Report 25094761 (Version 1)
Quarter: 2025Q1

REPORT INFORMATION
  Report Type: Spontaneous
  Country: US (occurrence: None)
  Receive Date: 20250318
  Receipt Date: 20250318
  Transmission Date: 20250408
  Serious: Yes (Life-Threatening, Hospitalization)
  Sender: FDA-CTU
  Company Number: None

PATIENT
  Age: 75 Year
  Sex: Female
  Weight: 69.9 kg

DRUGS (3)
  1. CEFTRIAXONE [Suspect]
     Active Substance: CEFTRIAXONE
     Indication: Abdominal infection
     Dosage: 1 G GRAM(S) DAILY INTRAVENOUS BOLUS
     Route: 040
     Dates: start: 20250317, end: 20250317
  2. APIXABAN [Concomitant]
     Active Substance: APIXABAN
     Dates: start: 20250314, end: 20250318
  3. METOPROLOL TARTRATE [Concomitant]
     Active Substance: METOPROLOL TARTRATE
     Dates: start: 20250314, end: 20250317

REACTIONS (5)
  - Angioedema [None]
  - Mental status changes [None]
  - Apnoea [None]
  - Cardiac arrest [None]
  - Anaphylactic reaction [None]

NARRATIVE: CASE EVENT DATE: 20250317
